FAERS Safety Report 17015763 (Version 1)
Quarter: 2019Q4

REPORT INFORMATION
  Report Type: Spontaneous
  Country: US (occurrence: US)
  Receive Date: 20191003
  Receipt Date: 20191003
  Transmission Date: 20200122
  Serious: Yes (Hospitalization)
  Sender: FDA-Public Use
  Company Number: None

PATIENT
  Age: 67 Year
  Sex: Female

DRUGS (18)
  1. XANAX [Concomitant]
     Active Substance: ALPRAZOLAM
  2. NEURONTIN [Suspect]
     Active Substance: GABAPENTIN
  3. HYDROCODONE POW BITARTRA [Concomitant]
  4. HYDROMORPHON [Concomitant]
     Active Substance: HYDROMORPHONE
  5. BACLOFEN. [Concomitant]
     Active Substance: BACLOFEN
  6. BUSIPRONE [Concomitant]
  7. FUROSEMIDE. [Concomitant]
     Active Substance: FUROSEMIDE
  8. CYMBALTA [Concomitant]
     Active Substance: DULOXETINE HYDROCHLORIDE
  9. GLATIRAMER 40MG [Suspect]
     Active Substance: GLATIRAMER
     Indication: MULTIPLE SCLEROSIS
     Route: 058
     Dates: start: 20190117
  10. ESTRADIOL. [Concomitant]
     Active Substance: ESTRADIOL
  11. REMERON [Concomitant]
     Active Substance: MIRTAZAPINE
  12. GABAPENTIN. [Concomitant]
     Active Substance: GABAPENTIN
  13. MIRTAZAPINE. [Concomitant]
     Active Substance: MIRTAZAPINE
  14. ESTRACE [Concomitant]
     Active Substance: ESTRADIOL
  15. HYDROCO/APAP [Concomitant]
     Active Substance: ACETAMINOPHEN\HYDROCODONE
  16. ALPRAZOLAM. [Concomitant]
     Active Substance: ALPRAZOLAM
  17. METOPROLOL TARTRATE. [Concomitant]
     Active Substance: METOPROLOL TARTRATE
  18. NARCAN [Concomitant]
     Active Substance: NALOXONE HYDROCHLORIDE

REACTIONS (2)
  - Therapy cessation [None]
  - Spinal operation [None]

NARRATIVE: CASE EVENT DATE: 20191003
